FAERS Safety Report 16151532 (Version 1)
Quarter: 2019Q2

REPORT INFORMATION
  Report Type: Spontaneous
  Country: IL (occurrence: IL)
  Receive Date: 20190403
  Receipt Date: 20190403
  Transmission Date: 20190711
  Serious: Yes (Hospitalization, Other)
  Sender: FDA-Public Use
  Company Number: IL-PFIZER INC-2019141547

PATIENT
  Age: 80 Year
  Sex: Male

DRUGS (2)
  1. TOVIAZ [Suspect]
     Active Substance: FESOTERODINE FUMARATE
     Indication: URINARY INCONTINENCE
     Dosage: 4 MG, UNK
  2. BETMIGA [Concomitant]
     Active Substance: MIRABEGRON

REACTIONS (2)
  - Urinary retention [Unknown]
  - Fall [Unknown]
